FAERS Safety Report 11045726 (Version 1)
Quarter: 2015Q2

REPORT INFORMATION
  Report Type: Spontaneous
  Country: DE (occurrence: DE)
  Receive Date: 20150417
  Receipt Date: 20150417
  Transmission Date: 20150821
  Serious: Yes (Hospitalization)
  Sender: FDA-Public Use
  Company Number: PHHY2015DE045723

PATIENT
  Sex: Female

DRUGS (2)
  1. LEPONEX [Suspect]
     Active Substance: CLOZAPINE
     Indication: PRODUCT USED FOR UNKNOWN INDICATION
     Dosage: UNK
     Route: 065
     Dates: start: 201406
  2. LEPONEX [Suspect]
     Active Substance: CLOZAPINE
     Dosage: 375 MG, QD
     Route: 065
     Dates: end: 20150401

REACTIONS (4)
  - White blood cell count decreased [Unknown]
  - Hepatic enzyme increased [Not Recovered/Not Resolved]
  - Antipsychotic drug level increased [Unknown]
  - C-reactive protein increased [Unknown]
